FAERS Safety Report 10204944 (Version 1)
Quarter: 2014Q2

REPORT INFORMATION
  Report Type: Spontaneous
  Country: FR (occurrence: FR)
  Receive Date: 20140529
  Receipt Date: 20140529
  Transmission Date: 20141212
  Serious: Yes (Other)
  Sender: FDA-Public Use
  Company Number: CHPA2014FR007170

PATIENT
  Age: 6 Week
  Sex: Female

DRUGS (6)
  1. SCOPODERM TTS [Suspect]
     Indication: BRONCHIAL OBSTRUCTION
     Dosage: 0.25 DF, Q72H
     Dates: start: 20140516, end: 20140518
  2. SCOPODERM TTS [Suspect]
     Indication: OFF LABEL USE
  3. RIVOTRIL [Concomitant]
     Dosage: UNK
  4. INEXIUM//ESOMEPRAZOLE MAGNESIUM [Concomitant]
     Dosage: UNK
  5. ZYMAD [Concomitant]
     Dosage: UNK
  6. DOLIPRANE [Concomitant]
     Dosage: UNK

REACTIONS (8)
  - Apnoea [Unknown]
  - Cyanosis [Unknown]
  - Malaise [Unknown]
  - Hypotonia [Unknown]
  - Hypoxia [Unknown]
  - Wrong technique in drug usage process [Unknown]
  - Drug administered to patient of inappropriate age [Unknown]
  - Therapeutic response changed [Unknown]
